FAERS Safety Report 22525349 (Version 1)
Quarter: 2023Q2

REPORT INFORMATION
  Report Type: Spontaneous
  Country: KR (occurrence: KR)
  Receive Date: 20230606
  Receipt Date: 20230606
  Transmission Date: 20230722
  Serious: Yes (Death)
  Sender: FDA-Public Use
  Company Number: KR-ORGANON-O2305KOR003141

PATIENT
  Age: 68 Year
  Sex: Male
  Weight: 82 kg

DRUGS (12)
  1. COZAAR [Suspect]
     Active Substance: LOSARTAN POTASSIUM
     Indication: Arteriosclerosis coronary artery
     Dosage: 25 MILLIGRAM, 1 DAY
     Route: 048
     Dates: start: 20180803
  2. TICAGRELOR [Suspect]
     Active Substance: TICAGRELOR
     Dosage: 180 MILLIGRAM, 1 DAY
     Dates: start: 20180720
  3. TICAGRELOR [Suspect]
     Active Substance: TICAGRELOR
     Dosage: 90 MILLIGRAM, 0.5 DAY
     Dates: start: 20180721, end: 20180802
  4. ASPIRIN [Suspect]
     Active Substance: ASPIRIN
     Dosage: 300 MILLIGRAM, 1 DAY
     Dates: start: 20180720
  5. ASPIRIN [Suspect]
     Active Substance: ASPIRIN
     Dosage: 100 MILLIGRAM, 1 DAY
     Dates: start: 20180721
  6. NITROGLYCERIN [Concomitant]
     Active Substance: NITROGLYCERIN
     Indication: Arteriosclerosis coronary artery
     Dosage: 10 MILLIGRAM, 1 DAY
     Route: 050
     Dates: start: 20180720, end: 20180720
  7. ATORVASTATIN CALCIUM [Concomitant]
     Active Substance: ATORVASTATIN CALCIUM
     Indication: Arteriosclerosis coronary artery
     Dosage: 80 MILLIGRAM, 1 DAY
     Route: 048
     Dates: start: 20180720, end: 20180720
  8. ATORVASTATIN CALCIUM [Concomitant]
     Active Substance: ATORVASTATIN CALCIUM
     Indication: Arteriosclerosis coronary artery
     Dosage: 20 MILLIGRAM, 1 DAY
     Route: 048
     Dates: start: 20180720, end: 20180802
  9. TRIMETAZIDINE DIHYDROCHLORIDE [Concomitant]
     Active Substance: TRIMETAZIDINE DIHYDROCHLORIDE
     Indication: Arteriosclerosis coronary artery
     Dosage: 35 MILLIGRAM, 0.5 DAY
     Route: 048
     Dates: start: 20180722
  10. BISOPROLOL FUMARATE [Concomitant]
     Active Substance: BISOPROLOL FUMARATE
     Indication: Arteriosclerosis coronary artery
     Dosage: 1.5 MILLIGRAM, 1 DAY
     Route: 048
     Dates: start: 20180803
  11. ROSUVASTATIN CALCIUM [Concomitant]
     Active Substance: ROSUVASTATIN CALCIUM
     Indication: Arteriosclerosis coronary artery
     Dosage: 20 MILLIGRAM, 1 DAY
     Route: 048
     Dates: start: 20180803
  12. METFORMIN HYDROCHLORIDE [Concomitant]
     Active Substance: METFORMIN HYDROCHLORIDE
     Indication: Diabetes mellitus
     Dosage: 500 MILLIGRAM, 1 DAY
     Route: 048
     Dates: start: 20180803

REACTIONS (1)
  - Death [Fatal]

NARRATIVE: CASE EVENT DATE: 20190711
